FAERS Safety Report 12732520 (Version 1)
Quarter: 2016Q3

REPORT INFORMATION
  Report Type: Spontaneous
  Country: US (occurrence: US)
  Receive Date: 20160912
  Receipt Date: 20160912
  Transmission Date: 20161109
  Serious: No
  Sender: FDA-Public Use
  Company Number: None

PATIENT
  Age: 58 Year
  Sex: Female

DRUGS (7)
  1. MELOXICAM TABLETS, USP 15MG [Suspect]
     Active Substance: MELOXICAM
     Indication: PERIPHERAL SWELLING
     Route: 048
     Dates: start: 20160629, end: 20160709
  2. METHYLPREDNISOLONE. [Concomitant]
     Active Substance: METHYLPREDNISOLONE
  3. PREDNIZONE [Concomitant]
  4. INDOMETHACIN. [Concomitant]
     Active Substance: INDOMETHACIN
  5. ABUTERAL INHALERS [Concomitant]
  6. ADVAIR HFA [Concomitant]
     Active Substance: FLUTICASONE PROPIONATE\SALMETEROL XINAFOATE
  7. NEXIUM [Concomitant]
     Active Substance: ESOMEPRAZOLE MAGNESIUM

REACTIONS (3)
  - Arthritis [None]
  - Gait disturbance [None]
  - Arthropathy [None]

NARRATIVE: CASE EVENT DATE: 20160715
